FAERS Safety Report 8985588 (Version 2)
Quarter: 2013Q1

REPORT INFORMATION
  Report Type: Spontaneous
  Country: US (occurrence: US)
  Receive Date: 20121226
  Receipt Date: 20130121
  Transmission Date: 20140127
  Serious: Yes (Other)
  Sender: FDA-Public Use
  Company Number: US-JNJFOC-20121015899

PATIENT
  Sex: Female
  Weight: 72.58 kg

DRUGS (5)
  1. REMICADE [Suspect]
     Indication: CROHN^S DISEASE
     Route: 042
     Dates: end: 20121103
  2. REMICADE [Suspect]
     Indication: CROHN^S DISEASE
     Dosage: LAST TREATMENT
     Route: 042
     Dates: start: 201209
  3. REMICADE [Suspect]
     Indication: CROHN^S DISEASE
     Dosage: PER WEIGHT
     Route: 042
     Dates: start: 2008
  4. REMICADE [Suspect]
     Indication: CROHN^S DISEASE
     Dosage: DOSE: HIGHEST AMOUNT
     Route: 042
     Dates: start: 2009
  5. UNSPECIFIED BIRTH CONTROL [Concomitant]
     Route: 065

REACTIONS (6)
  - Lupus-like syndrome [Recovering/Resolving]
  - Diplopia [Recovering/Resolving]
  - Myalgia [Recovering/Resolving]
  - Arthralgia [Recovering/Resolving]
  - Fatigue [Not Recovered/Not Resolved]
  - Contusion [Not Recovered/Not Resolved]
